FAERS Safety Report 24533026 (Version 2)
Quarter: 2024Q4

REPORT INFORMATION
  Report Type: Spontaneous
  Country: US (occurrence: US)
  Receive Date: 20241022
  Receipt Date: 20241023
  Transmission Date: 20250115
  Serious: Yes (Hospitalization)
  Sender: PFIZER
  Company Number: US-MLMSERVICE-20241010-PI223892-00270-1

PATIENT
  Age: 7 Decade
  Sex: Female

DRUGS (9)
  1. METHYLPREDNISOLONE SODIUM SUCCINATE [Suspect]
     Active Substance: METHYLPREDNISOLONE SODIUM SUCCINATE
     Indication: Acute generalised exanthematous pustulosis
     Dosage: 125 MG ONCE, FOLLOWED BY 60MG EVERY 8 HOURS
     Route: 042
  2. METHYLPREDNISOLONE SODIUM SUCCINATE [Suspect]
     Active Substance: METHYLPREDNISOLONE SODIUM SUCCINATE
     Dosage: 60 MG, 3X/DAY, ONCE, FOLLOWED BY 60MG EVERY 8 HOURS
     Route: 042
  3. METHYLPREDNISOLONE SODIUM SUCCINATE [Suspect]
     Active Substance: METHYLPREDNISOLONE SODIUM SUCCINATE
     Dosage: 20 MG, 30MIN PRIOR TO EACH IVIG ADMINISTRATION
     Route: 042
  4. METHYLPREDNISOLONE SODIUM SUCCINATE [Suspect]
     Active Substance: METHYLPREDNISOLONE SODIUM SUCCINATE
     Dosage: 500 MG, SINGLE, GIVEN ONCE, FOLLOWED BY THREE DOSES AT 60MG, THEN 20MG EVERY 8HOURS
     Route: 042
  5. METHYLPREDNISOLONE SODIUM SUCCINATE [Suspect]
     Active Substance: METHYLPREDNISOLONE SODIUM SUCCINATE
     Dosage: 180 MG, 3X/DAY, GIVEN ONCE, FOLLOWED BY THREE DOSES AT 60MG, THEN 20MG EVERY 8HOURS
     Route: 042
  6. METHYLPREDNISOLONE SODIUM SUCCINATE [Suspect]
     Active Substance: METHYLPREDNISOLONE SODIUM SUCCINATE
     Dosage: 500MG WAS GIVEN ONCE, FOLLOWED BY THREE DOSES AT 60MG, THEN 20MG EVERY 8HOURS
     Route: 042
  7. PREDNISONE [Suspect]
     Active Substance: PREDNISONE
     Indication: COVID-19
     Dosage: 12.5 MG, 1X/DAY, PROLONGED STEROID TAPER, ON PREDNISONE 12.5 MG DAILY
     Route: 042
  8. APIXABAN [Concomitant]
     Active Substance: APIXABAN
     Indication: Pulmonary embolism
     Dosage: 5 MG, 2X/DAY, TWO TIMES PER DAY
  9. PANTOPRAZOLE [Concomitant]
     Active Substance: PANTOPRAZOLE
     Indication: Gastrooesophageal reflux disease
     Dosage: 40 MG, 1X/DAY, DAILY

REACTIONS (6)
  - Disseminated herpes simplex [Unknown]
  - Ophthalmic herpes simplex [Unknown]
  - Herpes simplex virus urethritis [Unknown]
  - Oral herpes [Unknown]
  - Herpes simplex reactivation [Unknown]
  - Acute generalised exanthematous pustulosis [Unknown]
